FAERS Safety Report 6987896-4 (Version None)
Quarter: 2010Q3

REPORT INFORMATION
  Report Type: 
  Country: None (occurrence: None)
  Receive Date: 20100916
  Receipt Date: 20100908
  Transmission Date: 20110219
  Serious: No
  Sender: FDA-Public Use
  Company Number: US-ABBOTT-10P-163-0670193-00

PATIENT
  Sex: Male
  Weight: 90.8 kg

DRUGS (6)
  1. TRILIPIX [Suspect]
     Indication: HIGH DENSITY LIPOPROTEIN DECREASED
     Dates: start: 20100101
  2. TRILIPIX [Suspect]
     Indication: BLOOD TRIGLYCERIDES INCREASED
  3. LANOXIN [Concomitant]
     Indication: ARRHYTHMIA
  4. METFORMIN [Concomitant]
     Indication: TYPE 2 DIABETES MELLITUS
  5. LIPITOR [Concomitant]
     Indication: BLOOD CHOLESTEROL INCREASED
  6. CELEBREX [Concomitant]
     Indication: PAIN

REACTIONS (2)
  - DYSPEPSIA [None]
  - DYSPNOEA [None]
